FAERS Safety Report 25197645 (Version 1)
Quarter: 2025Q2

REPORT INFORMATION
  Report Type: Spontaneous
  Country: JP (occurrence: JP)
  Receive Date: 20250415
  Receipt Date: 20250415
  Transmission Date: 20250717
  Serious: Yes (Other)
  Sender: MERCK SHARP AND DOHME
  Company Number: JP-009507513-2275683

PATIENT
  Age: 67 Year
  Sex: Male

DRUGS (2)
  1. KEYTRUDA [Suspect]
     Active Substance: PEMBROLIZUMAB
     Indication: Bladder cancer
  2. ENFORTUMAB VEDOTIN [Suspect]
     Active Substance: ENFORTUMAB VEDOTIN
     Indication: Bladder cancer

REACTIONS (6)
  - Urinary bladder atrophy [Unknown]
  - Prostatitis [Unknown]
  - Therapy partial responder [Unknown]
  - Taste disorder [Unknown]
  - Post procedural urine leak [Unknown]
  - Quality of life decreased [Unknown]
